FAERS Safety Report 8387222-2 (Version None)
Quarter: 2012Q2

REPORT INFORMATION
  Report Type: 
  Country: None (occurrence: None)
  Receive Date: 20120525
  Receipt Date: 20120516
  Transmission Date: 20120825
  Serious: Yes (Hospitalization, Other)
  Sender: FDA-Public Use
  Company Number: FR-ROCHE-1059089

PATIENT
  Age: 52 Year
  Sex: Male
  Weight: 80 kg

DRUGS (2)
  1. VEMURAFENIB [Suspect]
     Indication: METASTATIC MALIGNANT MELANOMA
     Dates: start: 20111216, end: 20120412
  2. VEMURAFENIB [Suspect]
     Dates: start: 20120426

REACTIONS (5)
  - ARTHRALGIA [None]
  - PANNICULITIS LOBULAR [None]
  - PYREXIA [None]
  - OEDEMA [None]
  - RASH [None]
